FAERS Safety Report 13332355 (Version 1)
Quarter: 2017Q1

REPORT INFORMATION
  Report Type: Report from Study
  Country: BR (occurrence: BR)
  Receive Date: 20170314
  Receipt Date: 20170314
  Transmission Date: 20170428
  Serious: Yes (Other)
  Sender: FDA-Public Use
  Company Number: PHHY2017BR038364

PATIENT
  Sex: Female

DRUGS (2)
  1. EXELON PATCH [Suspect]
     Active Substance: RIVASTIGMINE
     Indication: INFECTIOUS PLEURAL EFFUSION
     Dosage: UNK
     Route: 062
     Dates: start: 2003
  2. EXELON PATCH [Suspect]
     Active Substance: RIVASTIGMINE
     Indication: PULMONARY MASS

REACTIONS (2)
  - Dementia Alzheimer^s type [Not Recovered/Not Resolved]
  - Product use issue [Unknown]
